FAERS Safety Report 7086518-4 (Version None)
Quarter: 2010Q4

REPORT INFORMATION
  Report Type: 
  Country: None (occurrence: None)
  Receive Date: 20101105
  Receipt Date: 20100923
  Transmission Date: 20110411
  Serious: Yes (Hospitalization, Other)
  Sender: FDA-Public Use
  Company Number: US-BAYER-200941465NA

PATIENT
  Age: 19 Year
  Sex: Female
  Weight: 54 kg

DRUGS (12)
  1. YASMIN [Suspect]
     Indication: ABDOMINAL PAIN
     Dosage: PHARMACY RECORDS: 01-FEB-2008 TO 23-SEP-2008
     Route: 048
     Dates: start: 20070516, end: 20081001
  2. OCELLA [Suspect]
     Indication: PRODUCT USED FOR UNKNOWN INDICATION
     Dosage: PHARMACY RECORDS: 16-OCT-2008 TO 02-OCT-2009
     Route: 065
     Dates: start: 20081001, end: 20091001
  3. ADVAIR DISKUS 100/50 [Concomitant]
     Indication: PRODUCT USED FOR UNKNOWN INDICATION
     Dosage: 500/50 DISKUS
     Route: 065
     Dates: start: 20090527
  4. SINGULAIR [Concomitant]
     Indication: PRODUCT USED FOR UNKNOWN INDICATION
     Route: 065
     Dates: start: 20090525
  5. HYOMAX-SL [Concomitant]
     Indication: PRODUCT USED FOR UNKNOWN INDICATION
     Route: 065
     Dates: start: 20090709
  6. TRIAMCINOLONE [Concomitant]
     Indication: PRODUCT USED FOR UNKNOWN INDICATION
     Route: 065
     Dates: start: 20090713
  7. PROAIR HFA [Concomitant]
     Indication: PRODUCT USED FOR UNKNOWN INDICATION
     Route: 055
     Dates: start: 20090810
  8. PREDNISONE [Concomitant]
  9. HYOSCYAMINE [Concomitant]
     Indication: PAIN
  10. MORPHINE [Concomitant]
  11. PAXIL [Concomitant]
  12. DEMEROL [Concomitant]
     Route: 042

REACTIONS (9)
  - ABDOMINAL PAIN [None]
  - BILIARY DYSKINESIA [None]
  - CHOLELITHIASIS [None]
  - GASTRITIS [None]
  - GASTRITIS EROSIVE [None]
  - HIATUS HERNIA [None]
  - HYPOPHAGIA [None]
  - NAUSEA [None]
  - WEIGHT DECREASED [None]
